FAERS Safety Report 21558265 (Version 3)
Quarter: 2023Q1

REPORT INFORMATION
  Report Type: Spontaneous
  Country: AT (occurrence: AT)
  Receive Date: 20221107
  Receipt Date: 20230102
  Transmission Date: 20230417
  Serious: Yes (Death, Other)
  Sender: FDA-Public Use
  Company Number: AT-002147023-NVSC2022AT239098

PATIENT

DRUGS (2)
  1. TYSABRI [Suspect]
     Active Substance: NATALIZUMAB
     Indication: Relapsing multiple sclerosis
     Route: 050
     Dates: start: 2007
  2. MAYZENT [Suspect]
     Active Substance: SIPONIMOD
     Indication: Relapsing multiple sclerosis
     Route: 050
     Dates: start: 202105

REACTIONS (5)
  - Completed suicide [Fatal]
  - Multiple sclerosis [Not Recovered/Not Resolved]
  - Insomnia [Unknown]
  - Aphthous ulcer [Unknown]
  - Dizziness [Unknown]

NARRATIVE: CASE EVENT DATE: 20210801
